FAERS Safety Report 22922068 (Version 2)
Quarter: 2024Q4

REPORT INFORMATION
  Report Type: Report from Study
  Country: US (occurrence: US)
  Receive Date: 20230908
  Receipt Date: 20241216
  Transmission Date: 20250115
  Serious: Yes (Other)
  Sender: EMD SERONO INC
  Company Number: US-Merck Healthcare KGaA-2023472001

PATIENT
  Age: 68 Year
  Sex: Female

DRUGS (2)
  1. TEPMETKO [Suspect]
     Active Substance: TEPOTINIB HYDROCHLORIDE
     Indication: Lung neoplasm malignant
     Dates: start: 20230616
  2. TEPMETKO [Suspect]
     Active Substance: TEPOTINIB HYDROCHLORIDE
     Dates: start: 20230708

REACTIONS (6)
  - Neuropathy peripheral [Unknown]
  - Alopecia [Recovered/Resolved]
  - Arthralgia [Unknown]
  - Myalgia [Unknown]
  - Oedema [Unknown]
  - Urinary tract infection [Recovered/Resolved]
